FAERS Safety Report 7291471-4 (Version None)
Quarter: 2011Q1

REPORT INFORMATION
  Report Type: 
  Country: None (occurrence: None)
  Receive Date: 20110214
  Receipt Date: 20110201
  Transmission Date: 20110831
  Serious: Yes (Hospitalization, Other)
  Sender: FDA-Public Use
  Company Number: US-ELI_LILLY_AND_COMPANY-US201102000607

PATIENT
  Age: 59 Year
  Sex: Male

DRUGS (2)
  1. ZYPREXA [Suspect]
     Indication: SCHIZOPHRENIA, PARANOID TYPE
     Dates: start: 20010101
  2. EFFEXOR [Concomitant]

REACTIONS (6)
  - LOSS OF CONSCIOUSNESS [None]
  - DECREASED APPETITE [None]
  - DIABETES MELLITUS [None]
  - POLLAKIURIA [None]
  - MENTAL DISORDER [None]
  - BLOOD PRESSURE INCREASED [None]
